FAERS Safety Report 9322939 (Version 2)
Quarter: 2013Q3

REPORT INFORMATION
  Report Type: Spontaneous
  Country: US (occurrence: US)
  Receive Date: 20130601
  Receipt Date: 20130805
  Transmission Date: 20140515
  Serious: Yes (Death)
  Sender: FDA-Public Use
  Company Number: US-ASTRAZENECA-2013SE38686

PATIENT
  Age: 68 Year
  Sex: Male

DRUGS (7)
  1. NEXIUM [Suspect]
     Indication: GASTROOESOPHAGEAL REFLUX DISEASE
     Route: 048
     Dates: start: 20030222
  2. ASPIRIN [Concomitant]
     Indication: ANTICOAGULANT THERAPY
  3. LORAZEPAM [Concomitant]
     Indication: ANXIETY
  4. NIFEDICAL XL [Concomitant]
  5. TRIAMTERENE HCTZ [Concomitant]
  6. ATORVASTATIN CALCIUM [Concomitant]
  7. AMOXICILLIN [Concomitant]

REACTIONS (15)
  - Death [Fatal]
  - Osteoporosis [Unknown]
  - Bone disorder [Unknown]
  - Multiple fractures [Unknown]
  - Clavicle fracture [Unknown]
  - Pelvic pain [Unknown]
  - Prostatomegaly [Unknown]
  - Angina pectoris [Unknown]
  - Arthritis [Unknown]
  - Chronic obstructive pulmonary disease [Unknown]
  - Cardiovascular disorder [Unknown]
  - Peripheral arterial occlusive disease [Unknown]
  - Coronary artery disease [Unknown]
  - Pain in extremity [Unknown]
  - Rheumatoid arthritis [Unknown]
